FAERS Safety Report 9696704 (Version 2)
Quarter: 2015Q3

REPORT INFORMATION
  Report Type: Spontaneous
  Country: US (occurrence: US)
  Receive Date: 20131119
  Receipt Date: 20150803
  Transmission Date: 20151125
  Serious: No
  Sender: FDA-Public Use
  Company Number: US-GILEAD-2007-0014383

PATIENT
  Age: 21 Year
  Sex: Female
  Weight: 63.5 kg

DRUGS (3)
  1. LETAIRIS [Suspect]
     Active Substance: AMBRISENTAN
     Route: 048
     Dates: end: 20071116
  2. WARFARIN [Concomitant]
     Active Substance: WARFARIN
     Dosage: UD
     Route: 048
  3. LETAIRIS [Suspect]
     Active Substance: AMBRISENTAN
     Indication: PULMONARY ARTERIAL HYPERTENSION
     Route: 048
     Dates: start: 20071116

REACTIONS (2)
  - Vomiting [Unknown]
  - Headache [Unknown]
